FAERS Safety Report 5053824-4 (Version None)
Quarter: 2006Q3

REPORT INFORMATION
  Report Type: 
  Country: None (occurrence: None)
  Receive Date: 20060718
  Receipt Date: 20060714
  Transmission Date: 20061208
  Serious: Yes (Hospitalization)
  Sender: FDA-Public Use
  Company Number: BR-GLAXOSMITHKLINE-A0612530A

PATIENT
  Age: 18 Year
  Sex: Female

DRUGS (2)
  1. AEROLIN [Suspect]
     Indication: SUICIDE ATTEMPT
     Route: 065
     Dates: start: 20060714, end: 20060714
  2. AMOXICILLIN [Suspect]
     Indication: SUICIDE ATTEMPT
     Dosage: 10TAB SINGLE DOSE
     Route: 065
     Dates: start: 20060714, end: 20060714

REACTIONS (4)
  - HYPERTENSION [None]
  - INTENTIONAL OVERDOSE [None]
  - SUICIDE ATTEMPT [None]
  - TACHYCARDIA [None]
